FAERS Safety Report 8972049 (Version 1)
Quarter: 2012Q4

REPORT INFORMATION
  Report Type: Report from Study
  Country: US (occurrence: US)
  Receive Date: 20121218
  Receipt Date: 20121218
  Transmission Date: 20130627
  Serious: Yes (Hospitalization, Other)
  Sender: FDA-Public Use
  Company Number: US-ACTELION-A-US2012-75873

PATIENT
  Age: 58 Year
  Sex: Female

DRUGS (3)
  1. VELETRI [Suspect]
     Indication: PULMONARY ARTERIAL HYPERTENSION
     Dosage: 71 ng/kg, per min
     Route: 042
     Dates: start: 20110107
  2. LETAIRIS [Concomitant]
  3. SILDENAFIL [Concomitant]

REACTIONS (5)
  - Sinusitis [Unknown]
  - Sinus operation [Unknown]
  - Nasal polyps [Unknown]
  - Cyst removal [Unknown]
  - Ovarian cyst [Unknown]
